FAERS Safety Report 8300246-6 (Version None)
Quarter: 2012Q1

REPORT INFORMATION
  Report Type: 
  Country: None (occurrence: None)
  Receive Date: 20120323
  Receipt Date: 20100527
  Transmission Date: 20120608
  Serious: Yes (Other)
  Sender: FDA-Public Use
  Company Number: PHHY2010US35054

PATIENT
  Sex: Male

DRUGS (1)
  1. TOBI [Suspect]
     Dosage: , TRANSPLACENTAL
     Route: 064

REACTIONS (2)
  - MATERNAL EXPOSURE DURING PREGNANCY [None]
  - DEAFNESS [None]
